FAERS Safety Report 10622512 (Version 1)
Quarter: 2014Q4

REPORT INFORMATION
  Report Type: Spontaneous
  Country: US (occurrence: None)
  Receive Date: 20141202
  Receipt Date: 20141202
  Transmission Date: 20150529
  Serious: Yes (Hospitalization)
  Sender: FDA-Public Use
  Company Number: None

PATIENT
  Age: 59 Year
  Sex: Male
  Weight: 71.9 kg

DRUGS (2)
  1. METHADONE [Suspect]
     Active Substance: METHADONE HYDROCHLORIDE
     Indication: DRUG WITHDRAWAL MAINTENANCE THERAPY
     Route: 048
     Dates: start: 20141112, end: 20141114
  2. OXYCODONE [Suspect]
     Active Substance: OXYCODONE
     Route: 048
     Dates: start: 20141108, end: 20141114

REACTIONS (5)
  - Hypoxia [None]
  - Atrial fibrillation [None]
  - Sedation [None]
  - Respiratory depression [None]
  - Mental status changes [None]

NARRATIVE: CASE EVENT DATE: 20141114
